FAERS Safety Report 16148488 (Version 2)
Quarter: 2019Q4

REPORT INFORMATION
  Report Type: Report from Study
  Country: DE (occurrence: DE)
  Receive Date: 20190402
  Receipt Date: 20191206
  Transmission Date: 20200122
  Serious: Yes (Life-Threatening)
  Sender: FDA-Public Use
  Company Number: PHHY2019DE071674

PATIENT
  Sex: Female
  Weight: 76 kg

DRUGS (7)
  1. DEFERASIROX. [Suspect]
     Active Substance: DEFERASIROX
     Indication: IRON OVERLOAD
     Dosage: 2 DF (720 MG), QD (9.3 MG/KG BODYWEIGHT/DAY)
     Route: 065
     Dates: start: 20180702, end: 20180910
  2. UNACID [Concomitant]
     Indication: BRONCHITIS
     Dosage: 750 MG, QD
     Route: 048
     Dates: start: 20180921
  3. BISOPROLOL [Concomitant]
     Active Substance: BISOPROLOL
     Indication: HYPOTHYROIDISM
     Dosage: 2.5 MG, QD
     Route: 065
  4. METAMIZOLE [Concomitant]
     Active Substance: METAMIZOLE
     Indication: BRONCHITIS
     Dosage: UNK
     Route: 048
     Dates: start: 20180921
  5. PANTOPRAZOLE [Concomitant]
     Active Substance: PANTOPRAZOLE
     Indication: ABDOMINAL DISCOMFORT
     Dosage: 40 MG, QD
     Route: 048
     Dates: start: 20180917
  6. DEFERASIROX. [Suspect]
     Active Substance: DEFERASIROX
     Dosage: 360 MG, QD (4.7 MG/KG BODYWEIGHT/DAY=)
     Route: 065
     Dates: start: 20180911
  7. L-THYROXIN [Concomitant]
     Active Substance: LEVOTHYROXINE SODIUM
     Indication: HYPOTHYROIDISM
     Dosage: 75 UG, QD
     Route: 048

REACTIONS (1)
  - Neutrophil count decreased [Not Recovered/Not Resolved]

NARRATIVE: CASE EVENT DATE: 20180824
